FAERS Safety Report 4677704-9 (Version None)
Quarter: 2005Q2

REPORT INFORMATION
  Report Type: 
  Country: None (occurrence: None)
  Receive Date: 20050527
  Receipt Date: 20050516
  Transmission Date: 20051028
  Serious: Yes (Hospitalization)
  Sender: FDA-Public Use
  Company Number: HQWYE826620MAY05

PATIENT
  Age: 74 Year
  Sex: Female

DRUGS (2)
  1. AMIODARONE (AMIODARONE) [Suspect]
     Indication: ATRIAL FIBRILLATION
     Dosage: 200 MG 1X PER 1 DAY/LONGER THAN 1 MONTH
  2. LORATADINE [Suspect]
     Dosage: 10 MG 1X PER 1 DAY

REACTIONS (3)
  - DRUG INTERACTION [None]
  - EJECTION FRACTION DECREASED [None]
  - TORSADE DE POINTES [None]
